FAERS Safety Report 22526434 (Version 1)
Quarter: 2023Q2

REPORT INFORMATION
  Report Type: Spontaneous
  Country: US (occurrence: US)
  Receive Date: 20230606
  Receipt Date: 20230606
  Transmission Date: 20230722
  Serious: Yes (Other)
  Sender: FDA-Public Use
  Company Number: US-JNJFOC-20230600907

PATIENT
  Age: 79 Year
  Sex: Female

DRUGS (1)
  1. NEUTROGENA TRIPLE AGE REPAIR MOISTURIZER BROAD SPECTRUM SPF25 [Suspect]
     Active Substance: AVOBENZONE\HOMOSALATE\OCTISALATE\OCTOCRYLENE
     Indication: Product used for unknown indication
     Dosage: USED LIKE A SMALL AMOUNT
     Route: 061
     Dates: start: 20230210

REACTIONS (2)
  - Application site swelling [Recovered/Resolved]
  - Application site erythema [Recovered/Resolved]

NARRATIVE: CASE EVENT DATE: 20230210
